FAERS Safety Report 23982883 (Version 1)
Quarter: 2024Q2

REPORT INFORMATION
  Report Type: Spontaneous
  Country: US (occurrence: US)
  Receive Date: 20240617
  Receipt Date: 20240617
  Transmission Date: 20240716
  Serious: No
  Sender: FDA-Public Use
  Company Number: US-PFIZER INC-202400193275

PATIENT
  Age: 89 Year
  Sex: Male

DRUGS (1)
  1. IBRANCE [Suspect]
     Active Substance: PALBOCICLIB
     Dosage: 100 MG, CYCLIC (1 TABLET DAILY, FOLLOWED BY 7 DAYS OFF, REPEAT EVERY 28 DAYS)
     Dates: start: 20240319

REACTIONS (2)
  - Rash [Recovering/Resolving]
  - Hot flush [Unknown]
